FAERS Safety Report 9859901 (Version 1)
Quarter: 2014Q1

REPORT INFORMATION
  Report Type: Report from Study
  Country: US (occurrence: US)
  Receive Date: 20140131
  Receipt Date: 20140131
  Transmission Date: 20141002
  Serious: Yes (Life-Threatening, Hospitalization)
  Sender: FDA-Public Use
  Company Number: US-009507513-1401USA014010

PATIENT
  Age: 73 Year
  Sex: Male
  Weight: 85.5 kg

DRUGS (4)
  1. VORINOSTAT [Suspect]
     Indication: CHRONIC MYELOMONOCYTIC LEUKAEMIA
     Dosage: 300 MG, BID
     Route: 048
     Dates: start: 20131113, end: 20131119
  2. VORINOSTAT [Suspect]
     Dosage: 300 MG, BID
     Route: 048
     Dates: start: 20140108, end: 20140114
  3. AZACITIDINE [Suspect]
     Indication: CHRONIC MYELOMONOCYTIC LEUKAEMIA
     Dosage: 75 MG/M2 SQ OR IV ON DAYS 1-7 OR 75 MG/M2 SQ OR IV ON DAYS 1-5 AND DAYS 8-9
     Dates: start: 20131112
  4. AZACITIDINE [Suspect]
     Dosage: 75 MG/M2 SQ OR IV ON DAYS 1-7 OR 75 MG/M2 SQ OR IV ON DAYS 1-5 AND DAYS 8-9
     Dates: start: 20140106, end: 20140112

REACTIONS (6)
  - Hyponatraemia [Not Recovered/Not Resolved]
  - Sepsis [Not Recovered/Not Resolved]
  - Anaemia [Not Recovered/Not Resolved]
  - Platelet count decreased [Not Recovered/Not Resolved]
  - Fatigue [Not Recovered/Not Resolved]
  - Hypotension [Not Recovered/Not Resolved]
